FAERS Safety Report 7402904-4 (Version None)
Quarter: 2011Q2

REPORT INFORMATION
  Report Type: 
  Country: None (occurrence: None)
  Receive Date: 20110408
  Receipt Date: 20101101
  Transmission Date: 20111010
  Serious: No
  Sender: FDA-Public Use
  Company Number: US-MYLANLABS-2010S1020191

PATIENT
  Age: 50 Year
  Sex: Female

DRUGS (7)
  1. URSODIOL [Concomitant]
     Indication: CHOLELITHIASIS
     Dosage: 2-TABLETS BID
     Route: 048
  2. REGLAN [Concomitant]
     Indication: ABDOMINAL DISCOMFORT
     Route: 048
  3. PRAVASTATIN [Concomitant]
     Indication: BLOOD CHOLESTEROL INCREASED
     Route: 048
  4. BELSAR PLUS [Concomitant]
     Indication: BLOOD PRESSURE INCREASED
     Dosage: 20MG/12.5MG
     Route: 048
  5. PRISTIQ [Concomitant]
     Indication: ANXIETY
     Route: 048
  6. PROTONIX [Concomitant]
     Indication: ABDOMINAL DISCOMFORT
     Route: 048
  7. TOPIRAMATE [Suspect]
     Indication: HEADACHE
     Route: 048
     Dates: start: 20100701, end: 20100701

REACTIONS (4)
  - INSOMNIA [None]
  - VOMITING [None]
  - RASH [None]
  - MYALGIA [None]
